FAERS Safety Report 6344505-5 (Version None)
Quarter: 2009Q3

REPORT INFORMATION
  Report Type: 
  Country: None (occurrence: None)
  Receive Date: 20090908
  Receipt Date: 20090831
  Transmission Date: 20100115
  Serious: Yes (Hospitalization)
  Sender: FDA-Public Use
  Company Number: US-ABBOTT-09P-163-0580287-00

PATIENT
  Sex: Female
  Weight: 54.026 kg

DRUGS (1)
  1. HUMIRA [Suspect]
     Indication: PSORIASIS
     Route: 058
     Dates: start: 20080711

REACTIONS (3)
  - HEPATIC ENZYME INCREASED [None]
  - PYREXIA [None]
  - SEPSIS [None]
